FAERS Safety Report 17893744 (Version 2)
Quarter: 2020Q3

REPORT INFORMATION
  Report Type: Report from Study
  Country: US (occurrence: US)
  Receive Date: 20200615
  Receipt Date: 20200831
  Transmission Date: 20201103
  Serious: Yes (Hospitalization)
  Sender: FDA-Public Use
  Company Number: US-AMGEN-USASL2020093676

PATIENT
  Sex: Female

DRUGS (2)
  1. ENBREL [Suspect]
     Active Substance: ETANERCEPT
     Dosage: UNK UNK, QWK
     Route: 065
     Dates: start: 2020
  2. ENBREL [Suspect]
     Active Substance: ETANERCEPT
     Indication: RHEUMATOID ARTHRITIS
     Dosage: UNK UNK, QWK
     Route: 065
     Dates: end: 201908

REACTIONS (2)
  - Lung disorder [Unknown]
  - Injection site pain [Unknown]
